FAERS Safety Report 6937387-1 (Version None)
Quarter: 2010Q3

REPORT INFORMATION
  Report Type: 
  Country: None (occurrence: None)
  Receive Date: 20100823
  Receipt Date: 20100813
  Transmission Date: 20110219
  Serious: Yes (Hospitalization, Other)
  Sender: FDA-Public Use
  Company Number: US-AMGEN-QUU427914

PATIENT
  Sex: Male
  Weight: 88.5 kg

DRUGS (21)
  1. NPLATE [Suspect]
     Indication: IDIOPATHIC THROMBOCYTOPENIC PURPURA
     Route: 058
     Dates: start: 20100422
  2. CARBOHYDRATES NOS/FATS NOS/MINERALS NOS/PROTEINS NOS/VITAMINS NOS. [Concomitant]
  3. PROTONIX [Concomitant]
  4. VFEND [Concomitant]
  5. CALCIUM CARBONATE [Concomitant]
  6. LOPRESSOR [Concomitant]
  7. FOLIC ACID [Concomitant]
  8. MAGNESIUM OXIDE [Concomitant]
  9. VALTREX [Concomitant]
  10. PROTOPIC [Concomitant]
  11. NOVOLOG [Concomitant]
  12. LEVEMIR [Concomitant]
  13. MARINOL [Concomitant]
  14. ACTIGALL [Concomitant]
  15. METHYLPREDNISOLONE [Concomitant]
  16. PROGRAF [Concomitant]
  17. NORVASC [Concomitant]
  18. TUMS [Concomitant]
  19. COUMADIN [Concomitant]
  20. OXYCODONE [Concomitant]
  21. BACTRIM [Concomitant]

REACTIONS (5)
  - EMBOLISM ARTERIAL [None]
  - HYPERKALAEMIA [None]
  - NOCARDIOSIS [None]
  - RENAL FAILURE [None]
  - THROMBOSIS [None]
